FAERS Safety Report 18773056 (Version 1)
Quarter: 2021Q1

REPORT INFORMATION
  Report Type: Spontaneous
  Country: US (occurrence: US)
  Receive Date: 20210121
  Receipt Date: 20210121
  Transmission Date: 20210419
  Serious: Yes (Other)
  Sender: FDA-Public Use
  Company Number: None

PATIENT
  Age: 59 Year
  Sex: Male
  Weight: 92.25 kg

DRUGS (8)
  1. BROMELAIN [Concomitant]
     Active Substance: BROMELAINS
  2. VITAMIN C [Concomitant]
     Active Substance: ASCORBIC ACID
  3. DUTASTERIDE. [Suspect]
     Active Substance: DUTASTERIDE
     Indication: PROSTATOMEGALY
     Dosage: ?          QUANTITY:1 CAPSULE(S);?
     Route: 048
     Dates: start: 20201118, end: 20201125
  4. TADALAFIL. [Concomitant]
     Active Substance: TADALAFIL
  5. ERGOCAL CIF [Concomitant]
  6. ZINC. [Concomitant]
     Active Substance: ZINC
  7. QUERCETIN [Concomitant]
     Active Substance: QUERCETIN
  8. TAMSULOSIN [Concomitant]
     Active Substance: TAMSULOSIN

REACTIONS (4)
  - Post micturition dribble [None]
  - Abnormal dreams [None]
  - Micturition urgency [None]
  - Drug ineffective [None]

NARRATIVE: CASE EVENT DATE: 20201125
